FAERS Safety Report 14733784 (Version 2)
Quarter: 2018Q2

REPORT INFORMATION
  Report Type: Spontaneous
  Country: US (occurrence: US)
  Receive Date: 20180409
  Receipt Date: 20180525
  Transmission Date: 20180711
  Serious: Yes (Other)
  Sender: FDA-Public Use
  Company Number: US-GLAXOSMITHKLINE-US2018055890

PATIENT
  Age: 75 Year
  Sex: Female
  Weight: 54.42 kg

DRUGS (9)
  1. VENTOLIN HFA [Suspect]
     Active Substance: ALBUTEROL SULFATE
     Dosage: 2 PUFF(S), BID
  2. VENTOLIN HFA [Concomitant]
     Active Substance: ALBUTEROL SULFATE
     Indication: LOWER RESPIRATORY TRACT INFECTION
  3. VENTOLIN HFA [Suspect]
     Active Substance: ALBUTEROL SULFATE
     Indication: LOWER RESPIRATORY TRACT INFECTION
     Dosage: UNK UNK, TID
  4. ADVIL [Concomitant]
     Active Substance: IBUPROFEN
  5. BREO ELLIPTA [Suspect]
     Active Substance: FLUTICASONE FUROATE\VILANTEROL TRIFENATATE
     Indication: BRONCHITIS
     Dosage: 1 PUFF(S), 1D
     Route: 055
     Dates: start: 20180331, end: 20180402
  6. LEVOTHYROXINE. [Concomitant]
     Active Substance: LEVOTHYROXINE
  7. CLONAZEPAM. [Concomitant]
     Active Substance: CLONAZEPAM
  8. ESTRADIOL. [Concomitant]
     Active Substance: ESTRADIOL
  9. PREDNISONE. [Concomitant]
     Active Substance: PREDNISONE

REACTIONS (10)
  - Feeling abnormal [Recovering/Resolving]
  - Dysphonia [Unknown]
  - Ill-defined disorder [Unknown]
  - Infection [Unknown]
  - Fatigue [Recovering/Resolving]
  - Throat irritation [Recovering/Resolving]
  - Lower respiratory tract infection [Unknown]
  - Enlarged uvula [Unknown]
  - Oropharyngeal pain [Recovering/Resolving]
  - Product used for unknown indication [Unknown]

NARRATIVE: CASE EVENT DATE: 201801
